FAERS Safety Report 26081873 (Version 1)
Quarter: 2025Q4

REPORT INFORMATION
  Report Type: Spontaneous
  Country: AU (occurrence: AU)
  Receive Date: 20251124
  Receipt Date: 20251124
  Transmission Date: 20260118
  Serious: Yes (Other)
  Sender: CELLTRION
  Company Number: AU-CELLTRION INC.-2025AU042118

PATIENT

DRUGS (2)
  1. STEQEYMA [Suspect]
     Active Substance: USTEKINUMAB-STBA
     Indication: Crohn^s disease
     Dosage: 90MG/ML, 1 SYRINGE (=90MG)  SUBCUTANEOUS INJECTION EVERY 4  WEEKS
     Route: 058
     Dates: start: 2025
  2. STEQEYMA [Suspect]
     Active Substance: USTEKINUMAB-STBA
     Dosage: 90MG/ML, 1 SYRINGE (=90MG)  SUBCUTANEOUS INJECTION EVERY 4  WEEKS
     Route: 058
     Dates: start: 20251028

REACTIONS (2)
  - Palliative care [Unknown]
  - Intentional dose omission [Unknown]
